FAERS Safety Report 23159132 (Version 1)
Quarter: 2023Q4

REPORT INFORMATION
  Report Type: Spontaneous
  Country: CZ (occurrence: CZ)
  Receive Date: 20231108
  Receipt Date: 20231108
  Transmission Date: 20240109
  Serious: Yes (Other)
  Sender: FDA-Public Use
  Company Number: CZ-SUN PHARMACEUTICAL INDUSTRIES LTD-2023RR-417465

PATIENT
  Age: 73 Year

DRUGS (2)
  1. GEMCITABINE [Suspect]
     Active Substance: GEMCITABINE
     Indication: Product used for unknown indication
     Dosage: 4 CYCLES
     Route: 065
  2. CISPLATIN [Suspect]
     Active Substance: CISPLATIN
     Indication: Product used for unknown indication
     Dosage: 4 CYCLES
     Route: 065

REACTIONS (5)
  - Thrombocytopenia [Unknown]
  - Anaemia [Unknown]
  - Neutropenia [Unknown]
  - Pancytopenia [Unknown]
  - Disease progression [Unknown]
